FAERS Safety Report 4658610-2 (Version None)
Quarter: 2005Q2

REPORT INFORMATION
  Report Type: 
  Country: None (occurrence: None)
  Receive Date: 20050509
  Receipt Date: 20050422
  Transmission Date: 20051028
  Serious: Yes (Hospitalization, Other)
  Sender: FDA-Public Use
  Company Number: USA-2002-0002746

PATIENT
  Sex: Male
  Weight: 88.4 kg

DRUGS (6)
  1. OXYCONTIN [Suspect]
     Indication: PAIN
     Dosage: MG, SEE TEXT
  2. VALIUM [Suspect]
     Indication: PANIC DISORDER
     Dosage: ORAL
     Route: 048
  3. PROZAC [Concomitant]
  4. NEURONTIN [Concomitant]
  5. ATENOLOL [Concomitant]
  6. MARIJUANA (CANNABIS) [Concomitant]

REACTIONS (35)
  - ABDOMINAL HERNIA [None]
  - AFFECTIVE DISORDER [None]
  - AKINESIA [None]
  - ALANINE AMINOTRANSFERASE INCREASED [None]
  - ANXIETY [None]
  - ARTHRALGIA [None]
  - ASTHENIA [None]
  - BACK PAIN [None]
  - CONSTIPATION [None]
  - DEPRESSED LEVEL OF CONSCIOUSNESS [None]
  - DRUG ABUSER [None]
  - DRUG DEPENDENCE [None]
  - DRUG WITHDRAWAL SYNDROME [None]
  - EJACULATION DISORDER [None]
  - FEELING ABNORMAL [None]
  - GROIN PAIN [None]
  - HEADACHE [None]
  - HYPERGLYCAEMIA [None]
  - INADEQUATE ANALGESIA [None]
  - INSOMNIA [None]
  - JOINT SWELLING [None]
  - LETHARGY [None]
  - MAJOR DEPRESSION [None]
  - NAIL DYSTROPHY [None]
  - ONYCHOMYCOSIS [None]
  - PAIN [None]
  - POLYSUBSTANCE DEPENDENCE [None]
  - POSTNASAL DRIP [None]
  - PROSTATITIS [None]
  - SINUSITIS [None]
  - SUICIDAL IDEATION [None]
  - TENDERNESS [None]
  - TESTICULAR PAIN [None]
  - TINNITUS [None]
  - WEIGHT DECREASED [None]
